FAERS Safety Report 23534257 (Version 1)
Quarter: 2024Q1

REPORT INFORMATION
  Report Type: Report from Study
  Country: MX (occurrence: MX)
  Receive Date: 20240216
  Receipt Date: 20240216
  Transmission Date: 20240409
  Serious: Yes (Life-Threatening, Hospitalization, Disabling, Other)
  Sender: FDA-Public Use
  Company Number: MX-ABBVIE-4164663

PATIENT
  Sex: Male
  Weight: 63 kg

DRUGS (1)
  1. HUMIRA [Suspect]
     Active Substance: ADALIMUMAB
     Indication: Psoriasis
     Dosage: FORM STRENGTH 40 MILLIGRAM?END DATE: JUN TO JUL 2022
     Route: 058
     Dates: start: 20190401

REACTIONS (8)
  - Tuberculosis [Recovered/Resolved]
  - Speech disorder [Unknown]
  - Underweight [Not Recovered/Not Resolved]
  - Kidney infection [Recovered/Resolved]
  - Weight decreased [Unknown]
  - Pruritus [Unknown]
  - Gait inability [Unknown]
  - Illness [Unknown]

NARRATIVE: CASE EVENT DATE: 20220101
